FAERS Safety Report 16941040 (Version 3)
Quarter: 2019Q4

REPORT INFORMATION
  Report Type: Report from Study
  Country: PE (occurrence: PE)
  Receive Date: 20191021
  Receipt Date: 20191219
  Transmission Date: 20200122
  Serious: Yes (Hospitalization, Other)
  Sender: FDA-Public Use
  Company Number: PE-SA-2019SA285246

PATIENT
  Age: 84 Year
  Sex: Female

DRUGS (4)
  1. HYDROCHLOROTHIAZIDE/IRBESARTAN [Suspect]
     Active Substance: HYDROCHLOROTHIAZIDE\IRBESARTAN
     Indication: HYPERTENSION
     Dosage: 300MG/25MG, QD
     Route: 048
  2. HYDROCHLOROTHIAZIDE/IRBESARTAN [Suspect]
     Active Substance: HYDROCHLOROTHIAZIDE\IRBESARTAN
     Indication: BLOOD PRESSURE INCREASED
     Dosage: 150MG/12.5 MG,BID
     Route: 048
     Dates: start: 2005, end: 201811
  3. HYDROCHLOROTHIAZIDE/IRBESARTAN [Suspect]
     Active Substance: HYDROCHLOROTHIAZIDE\IRBESARTAN
     Dosage: 300MG/25MG, QD
     Route: 048
     Dates: start: 20190713
  4. HYDROCHLOROTHIAZIDE/IRBESARTAN [Suspect]
     Active Substance: HYDROCHLOROTHIAZIDE\IRBESARTAN
     Dosage: 150MG/12.5 MG,QD
     Route: 048
     Dates: start: 201811, end: 201904

REACTIONS (21)
  - Arrhythmia [Recovered/Resolved]
  - Dysgeusia [Recovered/Resolved]
  - Muscular weakness [Unknown]
  - Dysgeusia [Unknown]
  - Constipation [Not Recovered/Not Resolved]
  - Nausea [Recovered/Resolved]
  - Arrhythmia [Not Recovered/Not Resolved]
  - Reflux gastritis [Unknown]
  - Peripheral swelling [Recovered/Resolved]
  - Depression [Unknown]
  - Blood pressure increased [Recovered/Resolved]
  - Muscular weakness [Not Recovered/Not Resolved]
  - Reflux gastritis [Recovered/Resolved]
  - Anxiety [Unknown]
  - Nausea [Unknown]
  - Ventricular arrhythmia [Not Recovered/Not Resolved]
  - Gait disturbance [Unknown]
  - Speech disorder [Unknown]
  - Pain in extremity [Unknown]
  - Hypotension [Not Recovered/Not Resolved]
  - Decreased appetite [Not Recovered/Not Resolved]

NARRATIVE: CASE EVENT DATE: 201811
